FAERS Safety Report 11751931 (Version 1)
Quarter: 2015Q4

REPORT INFORMATION
  Report Type: Spontaneous
  Country: US (occurrence: US)
  Receive Date: 20151118
  Receipt Date: 20151118
  Transmission Date: 20160304
  Serious: Yes (Hospitalization, Other)
  Sender: FDA-Public Use
  Company Number: US-DSJP-DSU-2015-131854

PATIENT

DRUGS (1)
  1. BENICAR HCT [Suspect]
     Active Substance: HYDROCHLOROTHIAZIDE\OLMESARTAN MEDOXOMIL
     Indication: HYPERTENSION
     Dosage: 40/25 MG, UNK
     Dates: start: 2002

REACTIONS (16)
  - Abscess intestinal [Unknown]
  - Gastrooesophageal reflux disease [Unknown]
  - Malabsorption [Unknown]
  - Diverticulitis [Unknown]
  - Dizziness [Recovered/Resolved]
  - Gastritis [Unknown]
  - Pancreatitis [Recovered/Resolved]
  - Large intestine polyp [Unknown]
  - Intestinal ulcer [Unknown]
  - Acute kidney injury [Unknown]
  - Oesophageal disorder [Unknown]
  - Irritable bowel syndrome [Unknown]
  - Oesophagitis ulcerative [Unknown]
  - Gastrointestinal infection [Unknown]
  - Diverticulum [Recovered/Resolved]
  - Constipation [Recovered/Resolved]

NARRATIVE: CASE EVENT DATE: 2004
